FAERS Safety Report 9382896 (Version 3)
Quarter: 2013Q3

REPORT INFORMATION
  Report Type: Spontaneous
  Country: FR (occurrence: FR)
  Receive Date: 20130703
  Receipt Date: 20130724
  Transmission Date: 20140515
  Serious: Yes (Hospitalization, Other)
  Sender: FDA-Public Use
  Company Number: FR-BAXTER-2013BAX024636

PATIENT
  Age: 69 Year
  Sex: Male

DRUGS (3)
  1. GAMMAGARD 50 MG/ML, POUDRE ET SOLVANT POUR SOLUTION POUR PERFUSION [Suspect]
     Indication: SECONDARY IMMUNODEFICIENCY
     Route: 042
     Dates: start: 20121001, end: 20121001
  2. GAMMAGARD 50 MG/ML, POUDRE ET SOLVANT POUR SOLUTION POUR PERFUSION [Suspect]
     Route: 042
     Dates: start: 20121029, end: 20121029
  3. GAMMAGARD 50 MG/ML, POUDRE ET SOLVANT POUR SOLUTION POUR PERFUSION [Suspect]
     Route: 042
     Dates: start: 200611, end: 20121001

REACTIONS (8)
  - Pelvic fracture [Unknown]
  - Haemorrhage [Unknown]
  - Back pain [Recovered/Resolved]
  - Cyanosis [Recovered/Resolved]
  - Dyspnoea [Recovered/Resolved]
  - Urinary retention [Unknown]
  - Chest pain [Recovered/Resolved]
  - Chills [Recovered/Resolved]
